FAERS Safety Report 20810566 (Version 2)
Quarter: 2022Q2

REPORT INFORMATION
  Report Type: Report from Study
  Country: US (occurrence: US)
  Receive Date: 20220510
  Receipt Date: 20220517
  Transmission Date: 20220721
  Serious: Yes (Hospitalization)
  Sender: FDA-Public Use
  Company Number: US-BAYER-2022A064274

PATIENT
  Age: 45 Year
  Sex: Female
  Weight: 92.063 kg

DRUGS (4)
  1. ADEMPAS [Suspect]
     Active Substance: RIOCIGUAT
     Indication: Pulmonary arterial hypertension
     Dosage: UNK
     Dates: start: 20220420
  2. ADEMPAS [Suspect]
     Active Substance: RIOCIGUAT
     Indication: Pulmonary arterial hypertension
     Dosage: 1.5 MG, TID
     Route: 048
  3. VELETRI [Suspect]
     Active Substance: EPOPROSTENOL
     Dosage: UNK
  4. OPSUMIT [Concomitant]
     Active Substance: MACITENTAN
     Dosage: UNK

REACTIONS (11)
  - Gastric dilatation [None]
  - Fluid retention [None]
  - Malaise [None]
  - Nausea [None]
  - Vomiting [Not Recovered/Not Resolved]
  - Illness [None]
  - Diarrhoea [None]
  - Pain in extremity [None]
  - Headache [None]
  - Pain in jaw [None]
  - Flushing [None]

NARRATIVE: CASE EVENT DATE: 20220101
